FAERS Safety Report 6594282-8 (Version None)
Quarter: 2010Q1

REPORT INFORMATION
  Report Type: 
  Country: None (occurrence: None)
  Receive Date: 20100222
  Receipt Date: 20100217
  Transmission Date: 20100710
  Serious: Yes (Other)
  Sender: FDA-Public Use
  Company Number: US-MERCK-1002USA02810

PATIENT
  Age: 7 Year
  Sex: Female
  Weight: 31 kg

DRUGS (2)
  1. SINGULAIR [Suspect]
     Indication: HYPERSENSITIVITY
     Route: 048
     Dates: start: 20091113, end: 20100206
  2. SINGULAIR [Suspect]
     Indication: RHINITIS ALLERGIC
     Route: 048
     Dates: start: 20091113, end: 20100206

REACTIONS (5)
  - AGGRESSION [None]
  - HALLUCINATION [None]
  - SLEEP TERROR [None]
  - SUICIDAL IDEATION [None]
  - WEIGHT INCREASED [None]
